FAERS Safety Report 6821398-0 (Version None)
Quarter: 2010Q3

REPORT INFORMATION
  Report Type: 
  Country: None (occurrence: None)
  Receive Date: 20100707
  Receipt Date: 20080813
  Transmission Date: 20110219
  Serious: No
  Sender: FDA-Public Use
  Company Number: US-PFIZER INC-2008068026

PATIENT
  Sex: Female
  Weight: 95.454 kg

DRUGS (3)
  1. ZOLOFT [Suspect]
     Indication: DEPRESSION
     Dates: start: 20080310
  2. ZOLOFT [Interacting]
     Indication: ANXIETY
  3. PALIPERIDONE [Interacting]
     Dates: start: 20080131, end: 20080601

REACTIONS (6)
  - DRUG INTERACTION [None]
  - DRY EYE [None]
  - DRY MOUTH [None]
  - DRY THROAT [None]
  - EYELID FUNCTION DISORDER [None]
  - NASAL DRYNESS [None]
